FAERS Safety Report 9015845 (Version 1)
Quarter: 2013Q1

REPORT INFORMATION
  Report Type: Spontaneous
  Country: FR (occurrence: FR)
  Receive Date: 20130116
  Receipt Date: 20130116
  Transmission Date: 20140127
  Serious: Yes (Life-Threatening)
  Sender: FDA-Public Use
  Company Number: PHHY2013FR003905

PATIENT
  Age: 60 Year
  Sex: Male

DRUGS (1)
  1. NEORAL [Suspect]
     Dosage: 25 MG, BID
     Dates: start: 1991

REACTIONS (2)
  - Renal transplant [Recovered/Resolved with Sequelae]
  - Renal failure chronic [Recovered/Resolved with Sequelae]
